FAERS Safety Report 18328186 (Version 1)
Quarter: 2020Q3

REPORT INFORMATION
  Report Type: Spontaneous
  Country: CN (occurrence: CN)
  Receive Date: 20200930
  Receipt Date: 20200930
  Transmission Date: 20201103
  Serious: Yes (Other)
  Sender: FDA-Public Use
  Company Number: CN-ABBVIE-20K-035-3581678-00

PATIENT
  Age: 70 Year
  Sex: Female

DRUGS (2)
  1. LOPINAVIR/RITONAVIR [Suspect]
     Active Substance: LOPINAVIR\RITONAVIR
     Indication: COVID-19
     Route: 048
     Dates: start: 2020
  2. HEPARIN [Concomitant]
     Active Substance: HEPARIN SODIUM
     Indication: COVID-19

REACTIONS (3)
  - Hypercapnia [Not Recovered/Not Resolved]
  - Off label use [Unknown]
  - Pulmonary function test abnormal [Not Recovered/Not Resolved]
